FAERS Safety Report 12691945 (Version 6)
Quarter: 2019Q4

REPORT INFORMATION
  Report Type: Spontaneous
  Country: US (occurrence: US)
  Receive Date: 20160827
  Receipt Date: 20191024
  Transmission Date: 20200122
  Serious: Yes (Other)
  Sender: FDA-Public Use
  Company Number: PHHY2016US117141

PATIENT
  Sex: Female
  Weight: 68.03 kg

DRUGS (3)
  1. ZOFRAN [Suspect]
     Active Substance: ONDANSETRON HYDROCHLORIDE
     Indication: MORNING SICKNESS
     Route: 042
     Dates: start: 20021212, end: 20021216
  2. ZOFRAN [Suspect]
     Active Substance: ONDANSETRON HYDROCHLORIDE
     Indication: MORNING SICKNESS
     Dosage: 4 MG, PRN
     Route: 065
     Dates: start: 20021212, end: 200306
  3. ZOFRAN ODT [Suspect]
     Active Substance: ONDANSETRON HYDROCHLORIDE
     Indication: PRODUCT USED FOR UNKNOWN INDICATION
     Route: 048

REACTIONS (17)
  - Maternal exposure during pregnancy [Unknown]
  - Appendicitis [Unknown]
  - Endometritis [Unknown]
  - Product use in unapproved indication [Unknown]
  - Cholecystitis acute [Unknown]
  - Carpal tunnel syndrome [Unknown]
  - Abdominal pain [Unknown]
  - Ovarian cyst [Unknown]
  - Dysfunctional uterine bleeding [Unknown]
  - Hypokalaemia [Unknown]
  - Gastroenteritis [Unknown]
  - Proteinuria [Unknown]
  - Urinary tract infection [Unknown]
  - Pre-eclampsia [Unknown]
  - Pelvic pain [Unknown]
  - Emotional distress [Unknown]
  - Cystitis [Unknown]
